FAERS Safety Report 25544993 (Version 1)
Quarter: 2025Q3

REPORT INFORMATION
  Report Type: Spontaneous
  Country: TH (occurrence: TH)
  Receive Date: 20250711
  Receipt Date: 20250711
  Transmission Date: 20251021
  Serious: Yes (Death)
  Sender: INCYTE
  Company Number: TH-002147023-NVSC2025TH108433

PATIENT

DRUGS (1)
  1. RUXOLITINIB [Suspect]
     Active Substance: RUXOLITINIB
     Indication: Primary myelofibrosis
     Route: 065

REACTIONS (2)
  - Illness [Fatal]
  - Infection [Fatal]
